FAERS Safety Report 6164688-X (Version None)
Quarter: 2009Q2

REPORT INFORMATION
  Report Type: 
  Country: None (occurrence: None)
  Receive Date: 20090423
  Receipt Date: 20090414
  Transmission Date: 20091009
  Serious: Yes (Hospitalization)
  Sender: FDA-Public Use
  Company Number: DE-ASTRAZENECA-2009PK01066

PATIENT
  Age: 58 Year
  Sex: Female

DRUGS (7)
  1. BELOC-ZOK [Suspect]
     Route: 048
     Dates: start: 20081202, end: 20081223
  2. FLUOXETINE [Suspect]
     Dosage: LONG TERM
     Route: 048
  3. LAMOTRIGINE [Suspect]
     Dosage: LONG TERM
     Route: 048
  4. TRAMADOL HCL [Suspect]
     Dosage: LONG TERM
     Route: 048
  5. FEMARA [Concomitant]
     Dosage: LONG TERM
     Route: 048
  6. LEVOTHYROXINE SODIUM [Concomitant]
     Dosage: LONG TERM
     Route: 048
  7. ARCOXIA [Concomitant]
     Route: 048
     Dates: start: 20081202, end: 20081209

REACTIONS (1)
  - DELIRIUM [None]
